FAERS Safety Report 25251829 (Version 1)
Quarter: 2025Q2

REPORT INFORMATION
  Report Type: Report from Study
  Country: CA (occurrence: CA)
  Receive Date: 20250429
  Receipt Date: 20250429
  Transmission Date: 20250716
  Serious: Yes (Other)
  Sender: TAKEDA
  Company Number: CA-TAKEDA-2025TUS040413

PATIENT
  Sex: Male

DRUGS (5)
  1. VEDOLIZUMAB [Suspect]
     Active Substance: VEDOLIZUMAB
     Indication: Colitis ulcerative
  2. METFORMIN [Concomitant]
     Active Substance: METFORMIN HYDROCHLORIDE
  3. PRAVASTATIN [Concomitant]
     Active Substance: PRAVASTATIN
  4. INVOKANA [Concomitant]
     Active Substance: CANAGLIFLOZIN
  5. ASPIRIN [Concomitant]
     Active Substance: ASPIRIN

REACTIONS (1)
  - Pneumonia [Not Recovered/Not Resolved]
